FAERS Safety Report 4623215-6 (Version None)
Quarter: 2005Q1

REPORT INFORMATION
  Report Type: 
  Country: None (occurrence: None)
  Receive Date: 20050330
  Receipt Date: 20050314
  Transmission Date: 20050727
  Serious: Yes (Hospitalization)
  Sender: FDA-Public Use
  Company Number: 2005AC00463

PATIENT
  Age: 26 Year
  Sex: Female

DRUGS (2)
  1. ROPIVACAINE [Suspect]
     Indication: ANAESTHESIA
     Dosage: 10 MG ONCE
  2. FENTANYL [Suspect]
     Indication: ANAESTHESIA
     Dosage: 20 UG ONCE

REACTIONS (3)
  - ANAESTHETIC COMPLICATION NEUROLOGICAL [None]
  - COMPLICATIONS OF MATERNAL EXPOSURE TO THERAPEUTIC DRUGS [None]
  - DELAYED RECOVERY FROM ANAESTHESIA [None]
